FAERS Safety Report 8579721-5 (Version None)
Quarter: 2012Q3

REPORT INFORMATION
  Report Type: 
  Country: None (occurrence: None)
  Receive Date: 20120808
  Receipt Date: 20120725
  Transmission Date: 20120928
  Serious: Yes (Hospitalization, Other)
  Sender: FDA-Public Use
  Company Number: PHHY2010JP85840

PATIENT
  Age: 3 Year
  Sex: Female

DRUGS (4)
  1. NEORAL [Suspect]
     Indication: COMBINED IMMUNODEFICIENCY
     Route: 048
  2. DEXAMETHASONE [Concomitant]
     Indication: COMBINED IMMUNODEFICIENCY
  3. PREDNISOLONE [Concomitant]
     Indication: COMBINED IMMUNODEFICIENCY
  4. GANCICLOVIR [Concomitant]
     Indication: CYTOMEGALOVIRUS HEPATITIS

REACTIONS (6)
  - HEPATIC FUNCTION ABNORMAL [None]
  - ANAEMIA HAEMOLYTIC AUTOIMMUNE [None]
  - CYTOMEGALOVIRUS HEPATITIS [None]
  - BRONCHIECTASIS [None]
  - INTERSTITIAL LUNG DISEASE [None]
  - COMBINED IMMUNODEFICIENCY [None]
